FAERS Safety Report 5365755-0 (Version None)
Quarter: 2007Q2

REPORT INFORMATION
  Report Type: 
  Country: None (occurrence: None)
  Receive Date: 20070621
  Receipt Date: 20070611
  Transmission Date: 20071010
  Serious: Yes (Other)
  Sender: FDA-Public Use
  Company Number: US-ABBOTT-07P-163-0369166-00

PATIENT
  Sex: Male
  Weight: 87.622 kg

DRUGS (8)
  1. VICODIN [Suspect]
     Indication: BACK PAIN
     Dosage: 15MG/500MG
     Route: 048
     Dates: start: 20070206
  2. LISINOPRIL [Concomitant]
     Indication: HYPERTENSION
     Dates: start: 20040101
  3. GLIPIZIDE [Concomitant]
     Indication: DIABETES MELLITUS NON-INSULIN-DEPENDENT
     Dates: start: 20060601
  4. METFORMIN HCL [Concomitant]
     Indication: DIABETES MELLITUS NON-INSULIN-DEPENDENT
     Dates: start: 20060601
  5. HYDROCHLOROTHIAZIDE [Concomitant]
     Indication: HYPERTENSION
     Dates: start: 20060601
  6. DIAZEPAM [Concomitant]
     Indication: ANXIETY
     Dates: start: 20040101
  7. DIAZEPAM [Concomitant]
     Indication: DEPRESSION
  8. VICODIN/APAP [Concomitant]
     Indication: BACK PAIN
     Dosage: 5/500 MILLIGRAM
     Dates: start: 20060301, end: 20070204

REACTIONS (1)
  - SUBSTANCE ABUSE [None]
